FAERS Safety Report 6576502-9 (Version None)
Quarter: 2010Q1

REPORT INFORMATION
  Report Type: 
  Country: None (occurrence: None)
  Receive Date: 20100210
  Receipt Date: 20100201
  Transmission Date: 20100710
  Serious: Yes (Hospitalization)
  Sender: FDA-Public Use
  Company Number: US-ASTRAZENECA-2010SE05248

PATIENT
  Age: 16688 Day
  Sex: Female

DRUGS (1)
  1. SEROQUEL [Suspect]
     Dosage: 150 MG 300 MG DAILY
     Route: 048

REACTIONS (1)
  - ILL-DEFINED DISORDER [None]
